FAERS Safety Report 25961925 (Version 1)
Quarter: 2025Q4

REPORT INFORMATION
  Report Type: Spontaneous
  Country: US (occurrence: US)
  Receive Date: 20251027
  Receipt Date: 20251027
  Transmission Date: 20260117
  Serious: Yes (Life-Threatening, Hospitalization)
  Sender: MYLAN
  Company Number: US-MYLANLABS-2025M1089969

PATIENT
  Age: 11 Year
  Sex: Male

DRUGS (32)
  1. GABAPENTIN [Interacting]
     Active Substance: GABAPENTIN
     Indication: Seizure
     Dosage: UNK
  2. GABAPENTIN [Interacting]
     Active Substance: GABAPENTIN
     Dosage: UNK
     Route: 065
  3. GABAPENTIN [Interacting]
     Active Substance: GABAPENTIN
     Dosage: UNK
     Route: 065
  4. GABAPENTIN [Interacting]
     Active Substance: GABAPENTIN
     Dosage: UNK
  5. FENTANYL [Interacting]
     Active Substance: FENTANYL
     Indication: Induction of anaesthesia
     Dosage: UNK
  6. FENTANYL [Interacting]
     Active Substance: FENTANYL
     Dosage: UNK
     Route: 042
  7. FENTANYL [Interacting]
     Active Substance: FENTANYL
     Dosage: UNK
     Route: 042
  8. FENTANYL [Interacting]
     Active Substance: FENTANYL
     Dosage: UNK
  9. ROCURONIUM BROMIDE [Interacting]
     Active Substance: ROCURONIUM BROMIDE
     Indication: Induction of anaesthesia
     Dosage: UNK
  10. ROCURONIUM BROMIDE [Interacting]
     Active Substance: ROCURONIUM BROMIDE
     Dosage: UNK
     Route: 042
  11. ROCURONIUM BROMIDE [Interacting]
     Active Substance: ROCURONIUM BROMIDE
     Dosage: UNK
     Route: 042
  12. ROCURONIUM BROMIDE [Interacting]
     Active Substance: ROCURONIUM BROMIDE
     Dosage: UNK
  13. EPINEPHRINE [Suspect]
     Active Substance: EPINEPHRINE
     Indication: Cardiac arrest
     Dosage: UNK, 2 DOSES
  14. EPINEPHRINE [Suspect]
     Active Substance: EPINEPHRINE
     Dosage: UNK, 2 DOSES
  15. EPINEPHRINE [Suspect]
     Active Substance: EPINEPHRINE
     Dosage: UNK, 2 DOSES
     Route: 065
  16. EPINEPHRINE [Suspect]
     Active Substance: EPINEPHRINE
     Dosage: UNK, 2 DOSES
     Route: 065
  17. EPINEPHRINE [Suspect]
     Active Substance: EPINEPHRINE
     Dosage: UNK, INFUSION
  18. EPINEPHRINE [Suspect]
     Active Substance: EPINEPHRINE
     Dosage: UNK, INFUSION
  19. EPINEPHRINE [Suspect]
     Active Substance: EPINEPHRINE
     Dosage: UNK, INFUSION
     Route: 065
  20. EPINEPHRINE [Suspect]
     Active Substance: EPINEPHRINE
     Dosage: UNK, INFUSION
     Route: 065
  21. SEVOFLURANE [Interacting]
     Active Substance: SEVOFLURANE
     Indication: Induction of anaesthesia
     Dosage: UNK, RESPIRATORY (INHALATION)
  22. SEVOFLURANE [Interacting]
     Active Substance: SEVOFLURANE
     Dosage: UNK, RESPIRATORY (INHALATION)
     Route: 055
  23. SEVOFLURANE [Interacting]
     Active Substance: SEVOFLURANE
     Dosage: UNK, RESPIRATORY (INHALATION)
     Route: 055
  24. SEVOFLURANE [Interacting]
     Active Substance: SEVOFLURANE
     Dosage: UNK, RESPIRATORY (INHALATION)
  25. PROPOFOL [Interacting]
     Active Substance: PROPOFOL
     Indication: Induction of anaesthesia
     Dosage: UNK
  26. PROPOFOL [Interacting]
     Active Substance: PROPOFOL
     Dosage: UNK
     Route: 042
  27. PROPOFOL [Interacting]
     Active Substance: PROPOFOL
     Dosage: UNK
     Route: 042
  28. PROPOFOL [Interacting]
     Active Substance: PROPOFOL
     Dosage: UNK
  29. KETAMINE [Interacting]
     Active Substance: KETAMINE
     Indication: Induction of anaesthesia
     Dosage: UNK
  30. KETAMINE [Interacting]
     Active Substance: KETAMINE
     Dosage: UNK
     Route: 042
  31. KETAMINE [Interacting]
     Active Substance: KETAMINE
     Dosage: UNK
     Route: 042
  32. KETAMINE [Interacting]
     Active Substance: KETAMINE
     Dosage: UNK

REACTIONS (4)
  - Toxicity to various agents [Recovered/Resolved]
  - Cardiac arrest [Recovered/Resolved]
  - Drug interaction [Recovered/Resolved]
  - Stress cardiomyopathy [Recovered/Resolved]
